FAERS Safety Report 4973523-4 (Version None)
Quarter: 2006Q2

REPORT INFORMATION
  Report Type: 
  Country: None (occurrence: None)
  Receive Date: 20060414
  Receipt Date: 20060406
  Transmission Date: 20061013
  Serious: Yes (Death)
  Sender: FDA-Public Use
  Company Number: US-SANOFI-SYNTHELABO-A03200602160

PATIENT
  Age: 83 Year
  Sex: Female

DRUGS (5)
  1. PLAVIX [Suspect]
     Indication: DRUG USE FOR UNKNOWN INDICATION
     Dosage: UNK
     Route: 048
  2. PRAVACHOL [Concomitant]
     Dosage: UNK
     Route: 048
  3. TOPROL-XL [Concomitant]
     Route: 048
  4. AVANDIA [Concomitant]
     Route: 048
  5. ISORDIL [Concomitant]
     Route: 048

REACTIONS (1)
  - DEATH [None]
